FAERS Safety Report 12007987 (Version 7)
Quarter: 2017Q1

REPORT INFORMATION
  Report Type: Report from Study
  Country: JP (occurrence: JP)
  Receive Date: 20160205
  Receipt Date: 20170125
  Transmission Date: 20170428
  Serious: Yes (Death)
  Sender: FDA-Public Use
  Company Number: JP-ROCHE-1705078

PATIENT
  Age: 68 Year
  Sex: Male
  Weight: 68.6 kg

DRUGS (29)
  1. PACLITAXEL. [Suspect]
     Active Substance: PACLITAXEL
     Indication: NON-SMALL CELL LUNG CANCER STAGE IV
     Dosage: MOST RECENT DOSE PRIOR TO THE EVENT ON 14/JAN/2016
     Route: 042
     Dates: start: 20151111
  2. TRAMAL [Concomitant]
     Active Substance: TRAMADOL
     Indication: CANCER PAIN
     Route: 065
     Dates: start: 20150928
  3. MOHRUS PAP [Concomitant]
     Indication: ARTHRALGIA
  4. MAGMITT [Concomitant]
     Active Substance: MAGNESIUM OXIDE
     Indication: CONSTIPATION
     Route: 065
     Dates: start: 20151114
  5. ALOXI [Concomitant]
     Active Substance: PALONOSETRON HYDROCHLORIDE
     Indication: PREMEDICATION
     Route: 065
     Dates: start: 20160114, end: 20160114
  6. ATEZOLIZUMAB [Suspect]
     Active Substance: ATEZOLIZUMAB
     Indication: NON-SMALL CELL LUNG CANCER STAGE IV
     Dosage: MOST RECENT DOSE PRIOR TO THE EVENT ON 14/JAN/2016
     Route: 042
     Dates: start: 20151111
  7. LOXOPROFEN [Concomitant]
     Active Substance: LOXOPROFEN
     Indication: ARTHRALGIA
  8. FRESTOL [Concomitant]
     Indication: CANCER PAIN
     Route: 065
     Dates: start: 20151014
  9. FRESTOL [Concomitant]
     Indication: ARTHRALGIA
  10. NEXIUM [Concomitant]
     Active Substance: ESOMEPRAZOLE MAGNESIUM
     Indication: GASTRITIS
     Route: 065
     Dates: start: 20150928
  11. NEXIUM [Concomitant]
     Active Substance: ESOMEPRAZOLE MAGNESIUM
     Indication: GASTRITIS
     Route: 065
     Dates: start: 20150917
  12. BEVACIZUMAB [Suspect]
     Active Substance: BEVACIZUMAB
     Indication: NON-SMALL CELL LUNG CANCER STAGE IV
     Dosage: MOST RECENT DOSE PRIOR TO THE EVENT ON 14/JAN/2016
     Route: 042
     Dates: start: 20151111
  13. CARBOPLATIN. [Suspect]
     Active Substance: CARBOPLATIN
     Indication: NON-SMALL CELL LUNG CANCER STAGE IV
     Dosage: MOST RECENT DOSE PRIOR TO THE EVENT ON 14/JAN/2016
     Route: 042
     Dates: start: 20151111
  14. MYSLEE [Concomitant]
     Active Substance: ZOLPIDEM TARTRATE
     Indication: INSOMNIA
  15. TRAMAL [Concomitant]
     Active Substance: TRAMADOL
     Indication: MYALGIA
  16. MOHRUS PAP [Concomitant]
     Indication: MYALGIA
  17. FRESTOL [Concomitant]
     Indication: MYALGIA
  18. GASTER [Concomitant]
     Active Substance: FAMOTIDINE
     Indication: PREMEDICATION
     Route: 065
     Dates: start: 20160114, end: 20160114
  19. RESTAMIN KOWA [Concomitant]
     Indication: PREMEDICATION
     Route: 065
     Dates: start: 20160114, end: 20160114
  20. DEPAS [Concomitant]
     Active Substance: ETIZOLAM
     Indication: INSOMNIA
     Route: 065
  21. LOXOPROFEN [Concomitant]
     Active Substance: LOXOPROFEN
     Indication: CANCER PAIN
     Route: 065
     Dates: start: 20150916
  22. LOXOPROFEN [Concomitant]
     Active Substance: LOXOPROFEN
     Indication: MYALGIA
  23. REBAMIPIDE [Concomitant]
     Active Substance: REBAMIPIDE
     Indication: GASTRITIS
     Route: 065
     Dates: start: 20150917
  24. ZOLEDRONIC ACID [Concomitant]
     Active Substance: ZOLEDRONIC ACID
     Route: 065
     Dates: start: 20160114, end: 20160114
  25. TANATRIL [Concomitant]
     Active Substance: IMIDAPRIL
     Indication: HYPERTENSION
     Route: 065
  26. BROTIZOLAM [Concomitant]
     Active Substance: BROTIZOLAM
     Indication: INSOMNIA
     Route: 065
     Dates: start: 20151114
  27. ZOLEDRONIC ACID [Concomitant]
     Active Substance: ZOLEDRONIC ACID
     Indication: METASTASES TO BONE
     Route: 065
     Dates: start: 20151026, end: 20160114
  28. TRAMAL [Concomitant]
     Active Substance: TRAMADOL
     Indication: ARTHRALGIA
  29. MOHRUS PAP [Concomitant]
     Indication: CANCER PAIN
     Route: 065
     Dates: start: 20151109

REACTIONS (1)
  - Aortic dissection [Fatal]

NARRATIVE: CASE EVENT DATE: 20160131
